FAERS Safety Report 8796910 (Version 1)
Quarter: 2012Q4

REPORT INFORMATION
  Report Type: 
  Country: US (occurrence: US)
  Receive Date: 20120919
  Receipt Date: 20120919
  Transmission Date: 20130627
  Serious: Yes (Hospitalization, Other)
  Sender: FDA-Public Use
  Company Number: US-VERTEX PHARMACEUTICAL INC.-AE-2012-008575

PATIENT
  Age: 57 Year
  Sex: Female
  Weight: 73 kg

DRUGS (13)
  1. VX-950 [Suspect]
     Indication: HEPATITIS C
     Dosage: 750 mg, tid
     Route: 048
  2. PEGASYS [Concomitant]
     Indication: HEPATITIS C
     Dosage: 180 UNK, UNK
     Route: 058
  3. RIBAVIRIN [Concomitant]
     Indication: HEPATITIS C
     Dosage: 200 mg, UNK
     Route: 048
  4. ZYRTEC [Concomitant]
     Dosage: 5 mg, UNK
     Route: 048
  5. ATARAX                             /00058401/ [Concomitant]
     Dosage: 10mg/5ml
     Route: 048
  6. CALCIUM [Concomitant]
     Dosage: 500 mg, UNK
     Route: 048
  7. VITAMIN E                          /00110501/ [Concomitant]
     Route: 048
  8. COD LIVER OIL [Concomitant]
  9. VITAMIN D /00107901/ [Concomitant]
     Dosage: 1000 ut, UNK
     Route: 048
  10. MULTIVITAMIN                       /00097801/ [Concomitant]
     Route: 048
  11. BIOTIN [Concomitant]
     Route: 048
  12. FLEXERIL                           /00428402/ [Concomitant]
     Dosage: 10 mg, UNK
     Route: 048
  13. TRAMADOL HCL [Concomitant]
     Dosage: 50 mg, UNK
     Route: 048

REACTIONS (11)
  - Chest pain [Recovered/Resolved]
  - Heart rate irregular [Recovered/Resolved]
  - Dyspnoea [Recovered/Resolved]
  - Anaemia [Recovered/Resolved]
  - White blood cell count decreased [Unknown]
  - Swelling [Unknown]
  - Influenza like illness [Unknown]
  - Headache [Unknown]
  - Dry mouth [Unknown]
  - Rash erythematous [Unknown]
  - Pruritus [Unknown]
